FAERS Safety Report 12788820 (Version 1)
Quarter: 2016Q3

REPORT INFORMATION
  Report Type: Spontaneous
  Country: US (occurrence: US)
  Receive Date: 20160928
  Receipt Date: 20160928
  Transmission Date: 20161109
  Serious: Yes (Other)
  Sender: FDA-Public Use
  Company Number: None

PATIENT
  Age: 24 Year
  Sex: Female
  Weight: 49.5 kg

DRUGS (2)
  1. ADDEROLL [Concomitant]
  2. CERTAIN DRI AM SOLID [Suspect]
     Active Substance: ALUMINUM ZIRCONIUM TETRACHLOROHYDREX GLY
     Indication: HYPERHIDROSIS
     Dates: start: 20160921, end: 20160924

REACTIONS (2)
  - Macule [None]
  - Rash [None]

NARRATIVE: CASE EVENT DATE: 20160926
